FAERS Safety Report 16323991 (Version 2)
Quarter: 2019Q2

REPORT INFORMATION
  Report Type: Report from Study
  Country: CA (occurrence: CA)
  Receive Date: 20190517
  Receipt Date: 20190521
  Transmission Date: 20190711
  Serious: Yes (Hospitalization)
  Sender: FDA-Public Use
  Company Number: CA-HLSUS-2019-CA-000527

PATIENT
  Age: 56 Year
  Sex: Male

DRUGS (3)
  1. CLOZARIL [Suspect]
     Active Substance: CLOZAPINE
     Route: 048
     Dates: start: 20190412, end: 20190421
  2. ZYPREXA [Concomitant]
     Active Substance: OLANZAPINE
  3. LATUDA [Concomitant]
     Active Substance: LURASIDONE HYDROCHLORIDE

REACTIONS (3)
  - Neuroleptic malignant syndrome [Unknown]
  - Adverse drug reaction [Unknown]
  - Neutropenia [Unknown]

NARRATIVE: CASE EVENT DATE: 20190421
